FAERS Safety Report 11821942 (Version 1)
Quarter: 2015Q4

REPORT INFORMATION
  Report Type: Spontaneous
  Country: US (occurrence: US)
  Receive Date: 20151210
  Receipt Date: 20151210
  Transmission Date: 20160305
  Serious: No
  Sender: FDA-Public Use
  Company Number: US-JNJFOC-20150704100

PATIENT
  Sex: Male

DRUGS (11)
  1. SYMBICORT [Concomitant]
     Active Substance: BUDESONIDE\FORMOTEROL FUMARATE DIHYDRATE
  2. JANUMET [Concomitant]
     Active Substance: METFORMIN HYDROCHLORIDE\SITAGLIPTIN PHOSPHATE
  3. TRILIPIX [Concomitant]
     Active Substance: FENOFIBRIC ACID
  4. GLIPIZIDE. [Concomitant]
     Active Substance: GLIPIZIDE
  5. FOLIC ACID. [Concomitant]
     Active Substance: FOLIC ACID
  6. BACTRIM [Concomitant]
     Active Substance: SULFAMETHOXAZOLE\TRIMETHOPRIM
  7. ASPIRIN. [Concomitant]
     Active Substance: ASPIRIN
  8. LOSARTAN. [Concomitant]
     Active Substance: LOSARTAN
  9. IMBRUVICA [Suspect]
     Active Substance: IBRUTINIB
     Indication: CHRONIC LYMPHOCYTIC LEUKAEMIA
     Route: 048
     Dates: start: 20140920, end: 2015
  10. MONTELUKAST [Concomitant]
     Active Substance: MONTELUKAST SODIUM
  11. ATORVASTATIN [Concomitant]
     Active Substance: ATORVASTATIN

REACTIONS (3)
  - Inflammation [Unknown]
  - Lung infection [Unknown]
  - Pulmonary mass [Unknown]
